FAERS Safety Report 8526492-4 (Version None)
Quarter: 2012Q3

REPORT INFORMATION
  Report Type: 
  Country: None (occurrence: None)
  Receive Date: 20120721
  Receipt Date: 20120710
  Transmission Date: 20120928
  Serious: Yes (Other)
  Sender: FDA-Public Use
  Company Number: IT-TEVA-347609ISR

PATIENT
  Sex: Male

DRUGS (1)
  1. RISPERIDONE [Suspect]
     Indication: DEPRESSION
     Dosage: .5 MILLIGRAM;
     Route: 048
     Dates: start: 20120107, end: 20120128

REACTIONS (1)
  - THROMBOCYTOPENIA [None]
